FAERS Safety Report 6016509-3 (Version None)
Quarter: 2008Q4

REPORT INFORMATION
  Report Type: 
  Country: None (occurrence: None)
  Receive Date: 20081222
  Receipt Date: 20081210
  Transmission Date: 20090506
  Serious: Yes (Hospitalization)
  Sender: FDA-Public Use
  Company Number: DK-AVENTIS-200820939GDDC

PATIENT
  Age: 14 Year
  Sex: Female
  Weight: 52 kg

DRUGS (2)
  1. TELFAST                            /01314201/ [Suspect]
     Indication: URTICARIA
     Route: 048
     Dates: start: 20080701
  2. TELFAST                            /01314201/ [Suspect]

REACTIONS (2)
  - CONSTIPATION [None]
  - OVERDOSE [None]
